FAERS Safety Report 7210970-4 (Version None)
Quarter: 2011Q1

REPORT INFORMATION
  Report Type: 
  Country: None (occurrence: None)
  Receive Date: 20110105
  Receipt Date: 20101229
  Transmission Date: 20110831
  Serious: Yes (Death)
  Sender: FDA-Public Use
  Company Number: A0902570A

PATIENT
  Age: 86 Year
  Sex: Female

DRUGS (1)
  1. ARIXTRA [Suspect]
     Route: 065
     Dates: start: 20100401, end: 20100707

REACTIONS (1)
  - DEATH [None]
